FAERS Safety Report 12379999 (Version 1)
Quarter: 2016Q2

REPORT INFORMATION
  Report Type: Spontaneous
  Country: US (occurrence: US)
  Receive Date: 20160518
  Receipt Date: 20160518
  Transmission Date: 20160815
  Serious: No
  Sender: FDA-Public Use
  Company Number: US-STRIDES ARCOLAB LIMITED-2016SP000622

PATIENT

DRUGS (3)
  1. VANCOMYCIN CAPSULES USP, 125 MG [Suspect]
     Active Substance: VANCOMYCIN
     Indication: CLOSTRIDIUM DIFFICILE INFECTION
     Dosage: 125 MG, QID
     Route: 048
     Dates: start: 20151231
  2. ALBUTEROL                          /00139501/ [Concomitant]
     Active Substance: ALBUTEROL
     Indication: PRODUCT USED FOR UNKNOWN INDICATION
     Dosage: UNK,
     Route: 065
  3. VANCOMYCIN CAPSULES USP, 125 MG [Suspect]
     Active Substance: VANCOMYCIN
     Dosage: 125 UNK, UNK
     Dates: start: 20160125

REACTIONS (1)
  - Headache [Not Recovered/Not Resolved]
